FAERS Safety Report 23817823 (Version 2)
Quarter: 2024Q2

REPORT INFORMATION
  Report Type: Spontaneous
  Country: JP (occurrence: JP)
  Receive Date: 20240506
  Receipt Date: 20240513
  Transmission Date: 20240715
  Serious: No
  Sender: FDA-Public Use
  Company Number: JP-NOVOPROD-1211988

PATIENT
  Age: 73 Year
  Sex: Female
  Weight: 54 kg

DRUGS (6)
  1. RYBELSUS [Suspect]
     Active Substance: SEMAGLUTIDE
     Dosage: 7.00MG
     Route: 048
     Dates: start: 20220622
  2. RYBELSUS [Suspect]
     Active Substance: SEMAGLUTIDE
     Indication: Diabetes mellitus
     Dosage: 3.00MG
     Route: 048
  3. FEBUXOSTAT [Concomitant]
     Active Substance: FEBUXOSTAT
     Indication: Hyperuricaemia
     Dosage: 10MG
     Route: 048
     Dates: start: 202206
  4. OLMESARTAN MEDOXOMIL [Concomitant]
     Active Substance: OLMESARTAN MEDOXOMIL
     Indication: Hypertension
     Dosage: 20MG
     Route: 048
     Dates: start: 202206
  5. INDOMETHACIN FARNESIL [Suspect]
     Active Substance: INDOMETHACIN FARNESIL
     Indication: Pain
     Dosage: 200MG
     Route: 048
     Dates: start: 20240328
  6. VOGLIBOSE [Concomitant]
     Active Substance: VOGLIBOSE
     Indication: Diabetes mellitus
     Dosage: 0.3MG
     Route: 048
     Dates: start: 2022

REACTIONS (1)
  - Body temperature decreased [Unknown]

NARRATIVE: CASE EVENT DATE: 20240422
